FAERS Safety Report 18150692 (Version 1)
Quarter: 2020Q3

REPORT INFORMATION
  Report Type: Spontaneous
  Country: IN (occurrence: IN)
  Receive Date: 20200814
  Receipt Date: 20200814
  Transmission Date: 20201103
  Serious: Yes (Other)
  Sender: FDA-Public Use
  Company Number: IN-MYLANLABS-2020M1071348

PATIENT
  Age: 63 Year
  Sex: Female

DRUGS (2)
  1. DOXORUBICIN [Suspect]
     Active Substance: DOXORUBICIN
     Indication: UNDIFFERENTIATED SARCOMA
     Dosage: UNK UNK, CYCLE
     Route: 065
  2. OLARATUMAB [Suspect]
     Active Substance: OLARATUMAB
     Indication: UNDIFFERENTIATED SARCOMA
     Dosage: UNK UNK, CYCLE
     Route: 065

REACTIONS (1)
  - Treatment failure [Unknown]
